FAERS Safety Report 11236367 (Version 1)
Quarter: 2015Q3

REPORT INFORMATION
  Report Type: Spontaneous
  Country: DE (occurrence: DE)
  Receive Date: 20150702
  Receipt Date: 20150702
  Transmission Date: 20151125
  Serious: Yes (Congenital Anomaly)
  Sender: FDA-Public Use
  Company Number: GXKR2015DE003138

PATIENT

DRUGS (4)
  1. FEMIBION                           /01597501/ [Concomitant]
     Indication: PROPHYLAXIS OF NEURAL TUBE DEFECT
     Dosage: 0.8 [MG/D (BIS 0.4 MG/D) ]
     Route: 064
     Dates: start: 20140421, end: 20140919
  2. MISODOL [Concomitant]
     Indication: LABOUR INDUCTION
     Route: 064
     Dates: start: 20150203, end: 20150203
  3. CITALOPRAM [Suspect]
     Active Substance: CITALOPRAM HYDROBROMIDE
     Indication: DEPRESSION
     Dosage: PROBABLY 10 MG/D
     Route: 064
     Dates: start: 20141022, end: 20150203
  4. JOHANNISKRAUT-KAPSELN [Concomitant]
     Indication: ANXIETY DISORDER
     Dosage: HOMEOPATHIC PREPARATION (C30)
     Route: 064
     Dates: start: 20140911, end: 20141022

REACTIONS (1)
  - Pyloric stenosis [Recovered/Resolved with Sequelae]
